FAERS Safety Report 6874601-5 (Version None)
Quarter: 2010Q3

REPORT INFORMATION
  Report Type: 
  Country: None (occurrence: None)
  Receive Date: 20100722
  Receipt Date: 20100706
  Transmission Date: 20110219
  Serious: Yes (Death, Hospitalization)
  Sender: FDA-Public Use
  Company Number: DSA_43491_2010

PATIENT
  Age: 56 Year
  Sex: Male

DRUGS (13)
  1. ENALAPRIL MALEATE [Suspect]
     Indication: PRODUCT USED FOR UNKNOWN INDICATION
     Dosage: (5 MG QD ORAL)
     Route: 048
  2. ALLOPURINOL [Suspect]
     Indication: PRODUCT USED FOR UNKNOWN INDICATION
     Dosage: (300 MG QD)
  3. HYDROCHLOROTHIAZIDE [Suspect]
     Indication: PRODUCT USED FOR UNKNOWN INDICATION
     Dosage: (25 MG QOD)
  4. NAPROXEN [Suspect]
     Indication: PRODUCT USED FOR UNKNOWN INDICATION
     Dosage: (500 MG BID)
  5. ASPIRIN [Suspect]
     Indication: PRODUCT USED FOR UNKNOWN INDICATION
     Dosage: (325 MG QD)
  6. BISOPROLOL FUMARATE [Suspect]
     Indication: PRODUCT USED FOR UNKNOWN INDICATION
     Dosage: (5 MG QD)
  7. NORVASC [Suspect]
     Indication: PRODUCT USED FOR UNKNOWN INDICATION
     Dosage: (10 MG,)
  8. ORENCIA [Suspect]
     Indication: PRODUCT USED FOR UNKNOWN INDICATION
     Dosage: (750 MG 1X/4 WEEKS INTRAVENOUS), (1000 MG 1X/4 WEEKS INTRAVENOUS)
     Route: 042
  9. ORENCIA [Suspect]
     Indication: PRODUCT USED FOR UNKNOWN INDICATION
     Dosage: (750 MG 1X/4 WEEKS INTRAVENOUS), (1000 MG 1X/4 WEEKS INTRAVENOUS)
     Route: 042
  10. PLAQUENIL [Suspect]
     Indication: PRODUCT USED FOR UNKNOWN INDICATION
     Dosage: (400 MG,)
  11. CORTISONE [Concomitant]
  12. NOVASEN [Concomitant]
  13. ACETAMINOPHEN W/ CODEINE [Concomitant]

REACTIONS (5)
  - ENDOCARDITIS [None]
  - HAEMATOCHEZIA [None]
  - RECTAL HAEMORRHAGE [None]
  - SEPSIS [None]
  - TRANSIENT ISCHAEMIC ATTACK [None]
